FAERS Safety Report 8993589 (Version 2)
Quarter: 2013Q1

REPORT INFORMATION
  Report Type: Report from Study
  Country: US (occurrence: US)
  Receive Date: 20130102
  Receipt Date: 20130306
  Transmission Date: 20140127
  Serious: Yes (Hospitalization)
  Sender: FDA-Public Use
  Company Number: US-ROCHE-1171597

PATIENT
  Age: 70 Year
  Sex: Male

DRUGS (2)
  1. ERLOTINIB [Suspect]
     Indication: HEPATIC CANCER
     Route: 065
  2. BEVACIZUMAB [Suspect]
     Indication: HEPATIC CANCER
     Route: 065

REACTIONS (2)
  - Anaemia [Unknown]
  - Pneumonia [Unknown]
